FAERS Safety Report 23044370 (Version 1)
Quarter: 2023Q4

REPORT INFORMATION
  Report Type: Report from Study
  Country: US (occurrence: US)
  Receive Date: 20231009
  Receipt Date: 20231009
  Transmission Date: 20240109
  Serious: Yes (Other)
  Sender: FDA-Public Use
  Company Number: US-ABBVIE-5439898

PATIENT
  Sex: Female

DRUGS (2)
  1. SKYRIZI [Suspect]
     Active Substance: RISANKIZUMAB-RZAA
     Indication: Psoriasis
     Dosage: WEEK 4. STRENGTH:150MG/ML
     Route: 058
     Dates: start: 20231003
  2. SKYRIZI [Suspect]
     Active Substance: RISANKIZUMAB-RZAA
     Dosage: WEEK 0. STRENGTH:150MG/ML
     Route: 058
     Dates: start: 202307, end: 202307

REACTIONS (5)
  - Postoperative adhesion [Unknown]
  - Hyperhidrosis [Not Recovered/Not Resolved]
  - Urinary tract infection [Unknown]
  - Chills [Not Recovered/Not Resolved]
  - Impaired healing [Unknown]

NARRATIVE: CASE EVENT DATE: 20230101
